FAERS Safety Report 21072730 (Version 2)
Quarter: 2022Q4

REPORT INFORMATION
  Report Type: Report from Study
  Country: US (occurrence: US)
  Receive Date: 20220712
  Receipt Date: 20221004
  Transmission Date: 20230113
  Serious: No
  Sender: FDA-Public Use
  Company Number: US-NOVARTISTESTPH-NVSC2022US157859

PATIENT
  Age: 37 Year

DRUGS (1)
  1. KESIMPTA [Suspect]
     Active Substance: OFATUMUMAB
     Indication: Relapsing multiple sclerosis
     Dosage: UNK UNK, QW (SUNDAY)
     Route: 058
     Dates: start: 20220603

REACTIONS (5)
  - Insomnia [Unknown]
  - Fatigue [Unknown]
  - Hypoaesthesia [Unknown]
  - Myalgia [Unknown]
  - Chills [Unknown]

NARRATIVE: CASE EVENT DATE: 20220703
